FAERS Safety Report 25601378 (Version 1)
Quarter: 2025Q3

REPORT INFORMATION
  Report Type: Spontaneous
  Country: US (occurrence: US)
  Receive Date: 20250724
  Receipt Date: 20250724
  Transmission Date: 20251021
  Serious: No
  Sender: ALEXION PHARMACEUTICALS
  Company Number: US-AstraZeneca-CH-00915425A

PATIENT
  Age: 58 Year
  Sex: Female

DRUGS (1)
  1. STRENSIQ [Suspect]
     Active Substance: ASFOTASE ALFA
     Indication: Hypophosphatasia
     Dosage: UNK UNK, TIW

REACTIONS (7)
  - Eyelid calcification [Unknown]
  - Sleep disorder [Unknown]
  - Gait disturbance [Unknown]
  - Dental discomfort [Unknown]
  - Myalgia [Unknown]
  - Bone pain [Unknown]
  - Arthralgia [Unknown]
